FAERS Safety Report 12384765 (Version 1)
Quarter: 2016Q2

REPORT INFORMATION
  Report Type: Spontaneous
  Country: US (occurrence: None)
  Receive Date: 20160518
  Receipt Date: 20160518
  Transmission Date: 20160815
  Serious: Yes (Hospitalization)
  Sender: FDA-Public Use
  Company Number: None

PATIENT
  Age: 67 Year
  Sex: Male
  Weight: 109.9 kg

DRUGS (2)
  1. DIVALPROEX [Suspect]
     Active Substance: DIVALPROEX SODIUM
     Route: 048
     Dates: start: 19990914, end: 20160229
  2. RISPERIDONE. [Suspect]
     Active Substance: RISPERIDONE
     Indication: BIPOLAR I DISORDER
     Dates: start: 19990914, end: 20160229

REACTIONS (4)
  - Therapy change [None]
  - Muscle rigidity [None]
  - Therapy cessation [None]
  - Parkinsonism [None]

NARRATIVE: CASE EVENT DATE: 20160229
